FAERS Safety Report 5419976-9 (Version None)
Quarter: 2007Q3

REPORT INFORMATION
  Report Type: 
  Country: None (occurrence: None)
  Receive Date: 20070820
  Receipt Date: 20070813
  Transmission Date: 20080115
  Serious: Yes (Other)
  Sender: FDA-Public Use
  Company Number: US-PFIZER INC-2007052285

PATIENT
  Sex: Female

DRUGS (2)
  1. GEODON [Suspect]
     Indication: HALLUCINATION, AUDITORY
  2. GEODON [Suspect]
     Indication: HALLUCINATION, VISUAL

REACTIONS (5)
  - ABNORMAL BEHAVIOUR [None]
  - CONVULSION [None]
  - HALLUCINATION [None]
  - PANIC ATTACK [None]
  - PSYCHOTIC DISORDER [None]
